FAERS Safety Report 6662449-6 (Version None)
Quarter: 2010Q1

REPORT INFORMATION
  Report Type: 
  Country: None (occurrence: None)
  Receive Date: 20100331
  Receipt Date: 20100322
  Transmission Date: 20100710
  Serious: Yes (Other)
  Sender: FDA-Public Use
  Company Number: US-ABBOTT-10P-163-0633835-00

PATIENT
  Sex: Female
  Weight: 90.8 kg

DRUGS (1)
  1. HUMIRA [Suspect]
     Indication: CROHN'S DISEASE
     Route: 058
     Dates: start: 20090101, end: 20100301

REACTIONS (11)
  - INFLUENZA LIKE ILLNESS [None]
  - JOINT SWELLING [None]
  - LUPUS-LIKE SYNDROME [None]
  - LYMPHADENOPATHY [None]
  - NECK PAIN [None]
  - ODYNOPHAGIA [None]
  - PANCREATITIS [None]
  - PYREXIA [None]
  - RASH [None]
  - UPPER RESPIRATORY TRACT INFECTION [None]
  - VARICELLA [None]
